FAERS Safety Report 7377946-8 (Version None)
Quarter: 2011Q1

REPORT INFORMATION
  Report Type: 
  Country: None (occurrence: None)
  Receive Date: 20110328
  Receipt Date: 20110316
  Transmission Date: 20110831
  Serious: Yes (Hospitalization, Other)
  Sender: FDA-Public Use
  Company Number: JP-PFIZER INC-2010140796

PATIENT
  Age: 69 Year
  Sex: Female
  Weight: 43 kg

DRUGS (17)
  1. AVASTIN [Suspect]
     Indication: COLON CANCER
     Dosage: 5 MG/KG, UNK
     Route: 041
     Dates: start: 20100811, end: 20101215
  2. MAGNESIUM OXIDE [Concomitant]
     Indication: CONSTIPATION
     Dosage: 1 G, UNK
     Route: 048
  3. DAI-KENCHU-TO [Concomitant]
     Indication: CONSTIPATION
     Dosage: 2.5 G, 3X/DAY
     Route: 048
  4. DICLOFENAC SODIUM [Concomitant]
     Indication: BACK PAIN
     Dosage: 75 MG, UNK
     Route: 048
  5. OXYCONTIN [Concomitant]
     Indication: BACK PAIN
     Dosage: 10 MG, 2X/DAY
     Route: 048
  6. CAMPTOSAR [Suspect]
     Indication: COLON CANCER
     Dosage: 180 MG/M2, UNK
     Route: 041
     Dates: start: 20100811, end: 20101215
  7. PYDOXAL [Concomitant]
     Indication: NEUROPATHY PERIPHERAL
     Dosage: 10 MG, 3X/DAY
     Route: 048
  8. SELBEX [Concomitant]
     Indication: DUODENAL ULCER
     Dosage: 50 MG, 3X/DAY
     Route: 048
  9. FLUOROURACIL [Suspect]
     Dosage: 2400 MG/M2, D1-2
     Route: 041
     Dates: start: 20100811, end: 20101215
  10. HACHIAZULE [Concomitant]
     Indication: STOMATITIS
     Dosage: UNK
  11. LEUCOVORIN CALCIUM [Suspect]
     Indication: COLON CANCER
     Dosage: 200 MG/M2, UNK
     Route: 041
     Dates: start: 20100811, end: 20101215
  12. TAKEPRON [Concomitant]
     Indication: DUODENAL ULCER
     Dosage: 30 MG, UNK
     Route: 048
  13. TEPRENONE [Concomitant]
     Dosage: 50 MG, UNK
     Route: 048
     Dates: start: 20101023
  14. KETOPROFEN [Concomitant]
     Indication: BACK PAIN
     Dosage: UNK
     Route: 061
  15. FLUOROURACIL [Suspect]
     Indication: COLON CANCER
     Dosage: 400 MG/M2
     Route: 040
     Dates: start: 20100811, end: 20101215
  16. GABAPENTIN [Concomitant]
     Indication: BACK PAIN
     Dosage: 200 MG, UNK
     Route: 048
  17. LOXOPROFEN [Concomitant]
     Dosage: 60 MG, UNK
     Route: 048
     Dates: start: 20101023

REACTIONS (5)
  - SEPSIS [None]
  - HAEMOGLOBIN DECREASED [None]
  - URINARY TRACT INFECTION [None]
  - DIARRHOEA [None]
  - INTESTINAL PERFORATION [None]
